FAERS Safety Report 13812192 (Version 4)
Quarter: 2018Q1

REPORT INFORMATION
  Report Type: Report from Study
  Country: US (occurrence: US)
  Receive Date: 20170728
  Receipt Date: 20180125
  Transmission Date: 20180508
  Serious: No
  Sender: FDA-Public Use
  Company Number: US-AMGEN-USASL2017099767

PATIENT
  Age: 65 Year
  Sex: Female

DRUGS (2)
  1. REPATHA [Suspect]
     Active Substance: EVOLOCUMAB
     Indication: TYPE IIA HYPERLIPIDAEMIA
  2. REPATHA [Suspect]
     Active Substance: EVOLOCUMAB
     Indication: BLOOD CHOLESTEROL INCREASED
     Dosage: 140 MG, Q2WK
     Route: 065
     Dates: start: 201705

REACTIONS (8)
  - Ear discomfort [Recovered/Resolved]
  - Nasal congestion [Recovered/Resolved]
  - Oropharyngeal pain [Recovered/Resolved]
  - Ear pain [Recovered/Resolved]
  - Cough [Unknown]
  - Eye pruritus [Recovered/Resolved]
  - Blood glucose increased [Unknown]
  - Dizziness [Recovered/Resolved]
